FAERS Safety Report 22320483 (Version 2)
Quarter: 2023Q2

REPORT INFORMATION
  Report Type: Report from Study
  Country: US (occurrence: US)
  Receive Date: 20230515
  Receipt Date: 20230518
  Transmission Date: 20230722
  Serious: No
  Sender: FDA-Public Use
  Company Number: US-002147023-NVSC2023US107396

PATIENT
  Sex: Male

DRUGS (1)
  1. ENTRESTO [Suspect]
     Active Substance: SACUBITRIL\VALSARTAN
     Indication: Product used for unknown indication
     Dosage: 1 DOSAGE FORM, BID (START DATE: MID APR 2023)
     Route: 048
     Dates: start: 202304, end: 202305

REACTIONS (7)
  - SARS-CoV-2 test positive [Recovered/Resolved]
  - Pyrexia [Unknown]
  - Haemoglobin abnormal [Unknown]
  - Limb discomfort [Unknown]
  - Dizziness [Unknown]
  - Hypotension [Unknown]
  - Asthenia [Unknown]
